FAERS Safety Report 9732450 (Version 1)
Quarter: 2013Q4

REPORT INFORMATION
  Report Type: Spontaneous
  Country: US (occurrence: US)
  Receive Date: 20131205
  Receipt Date: 20131205
  Transmission Date: 20140711
  Serious: No
  Sender: FDA-Public Use
  Company Number: US-PFIZER INC-2013344742

PATIENT
  Sex: Female

DRUGS (1)
  1. IBUPROFEN [Suspect]
     Indication: MUSCULOSKELETAL DISORDER
     Dosage: 600 MG, TWICE A DAY OR 3 TIMES A DAY

REACTIONS (3)
  - Overdose [Unknown]
  - Off label use [Unknown]
  - Drug ineffective for unapproved indication [Unknown]
